FAERS Safety Report 8100670-0 (Version None)
Quarter: 2012Q1

REPORT INFORMATION
  Report Type: 
  Country: None (occurrence: None)
  Receive Date: 20120129
  Receipt Date: 20111107
  Transmission Date: 20120608
  Serious: No
  Sender: FDA-Public Use
  Company Number: US-ABBOTT-11P-163-0871966-00

PATIENT
  Sex: Female
  Weight: 104.42 kg

DRUGS (9)
  1. HUMIRA [Suspect]
     Indication: RHEUMATOID ARTHRITIS
     Dates: start: 20090101
  2. IMITREX [Concomitant]
     Indication: MIGRAINE
  3. PREVACID [Concomitant]
     Indication: GASTROOESOPHAGEAL REFLUX DISEASE
  4. ROPINIROLE [Concomitant]
     Indication: RESTLESS LEGS SYNDROME
  5. NORVASC [Concomitant]
     Indication: HYPERTENSION
  6. ALPRAZOLAM [Concomitant]
     Indication: INSOMNIA
  7. FOLIC ACID [Concomitant]
     Indication: VITAMIN SUPPLEMENTATION
  8. METHOTREXATE [Concomitant]
     Indication: RHEUMATOID ARTHRITIS
  9. KLOR-CON [Concomitant]
     Indication: MINERAL SUPPLEMENTATION

REACTIONS (3)
  - ASTHMA [None]
  - COUGH [None]
  - OEDEMA PERIPHERAL [None]
